FAERS Safety Report 14937419 (Version 1)
Quarter: 2018Q2

REPORT INFORMATION
  Report Type: Spontaneous
  Country: US (occurrence: US)
  Receive Date: 20180507
  Receipt Date: 20180507
  Transmission Date: 20180711
  Serious: Yes (Other)
  Sender: FDA-Public Use
  Company Number: None

PATIENT
  Age: 3 Year
  Sex: Female
  Weight: 15.75 kg

DRUGS (3)
  1. NORDIC NATURALS FISH OIL [Concomitant]
  2. CHILD LIFE MULTIVITAMIN [Concomitant]
  3. MIRALAX [Suspect]
     Active Substance: POLYETHYLENE GLYCOL 3350
     Indication: DEFAECATION DISORDER
     Dosage: QUANTITY:1 HALF CAP FULL;?
     Route: 048
     Dates: start: 20180501, end: 20180503

REACTIONS (3)
  - Screaming [None]
  - Anger [None]
  - Aggression [None]

NARRATIVE: CASE EVENT DATE: 20180501
